FAERS Safety Report 4772717-0 (Version None)
Quarter: 2005Q3

REPORT INFORMATION
  Report Type: 
  Country: None (occurrence: None)
  Receive Date: 20050919
  Receipt Date: 20050519
  Transmission Date: 20060218
  Serious: Yes (Hospitalization)
  Sender: FDA-Public Use
  Company Number: 2005AC00771

PATIENT
  Age: 24069 Day
  Sex: Male

DRUGS (7)
  1. NEXIUM [Suspect]
     Indication: REFLUX OESOPHAGITIS
     Route: 048
     Dates: start: 20050225, end: 20050325
  2. COVERSYL [Concomitant]
  3. INSULIN [Concomitant]
  4. PANTOZOL [Concomitant]
  5. ASAFLOW [Concomitant]
  6. INSULATARD NPH HUMAN [Concomitant]
  7. ACTRAPID [Concomitant]
     Dosage: 10U IN THE MONING, 7 U AT LUNCH AND 10 U IN THE EVENING

REACTIONS (7)
  - ABDOMINAL PAIN UPPER [None]
  - APATHY [None]
  - FATIGUE [None]
  - LEUKOPENIA [None]
  - NEUTROPENIA [None]
  - PARVOVIRUS INFECTION [None]
  - SOMNOLENCE [None]
